FAERS Safety Report 4845173-1 (Version None)
Quarter: 2005Q4

REPORT INFORMATION
  Report Type: 
  Country: None (occurrence: None)
  Receive Date: 20051129
  Receipt Date: 20051107
  Transmission Date: 20060501
  Serious: Yes (Hospitalization, Other)
  Sender: FDA-Public Use
  Company Number: US_0511123886

PATIENT
  Age: 64 Year
  Sex: Male

DRUGS (7)
  1. HUMULIN R [Suspect]
     Dosage: PRN/SLIDING SCALE, SUBCUTANEOUS
     Route: 058
     Dates: start: 20050218
  2. HUMULIN N [Suspect]
     Dosage: SUBCUTANEOUS
     Route: 058
     Dates: end: 20020101
  3. HUMULIN 70/30 [Suspect]
     Dosage: SUBCUTANEOUS
     Route: 058
     Dates: end: 20020101
  4. LANTUS [Concomitant]
  5. WARFARIN SODIUM [Concomitant]
  6. AMARYL   /SWE/ (GLIMEPIRIDE) [Concomitant]
  7. GLUCOPHAGE [Concomitant]

REACTIONS (12)
  - BLOOD GLUCOSE DECREASED [None]
  - BLOOD GLUCOSE FLUCTUATION [None]
  - CATHETER RELATED INFECTION [None]
  - FALL [None]
  - HAEMORRHAGE [None]
  - HEAD INJURY [None]
  - HIP FRACTURE [None]
  - HYPOTENSION [None]
  - LOCALISED INFECTION [None]
  - MYOCARDIAL INFARCTION [None]
  - PHARMACEUTICAL PRODUCT COMPLAINT [None]
  - STAPHYLOCOCCAL INFECTION [None]
